FAERS Safety Report 18288372 (Version 1)
Quarter: 2020Q3

REPORT INFORMATION
  Report Type: Spontaneous
  Country: US (occurrence: US)
  Receive Date: 20200920
  Receipt Date: 20200920
  Transmission Date: 20201103
  Serious: Yes (Disabling, Other)
  Sender: FDA-Public Use
  Company Number: None

PATIENT
  Sex: Female
  Weight: 65.77 kg

DRUGS (3)
  1. MIRENA [Suspect]
     Active Substance: LEVONORGESTREL
     Dates: start: 20180830, end: 20200608
  2. ESCITALOPRAM [Concomitant]
     Active Substance: ESCITALOPRAM OXALATE
  3. NEXPLANON [Concomitant]
     Active Substance: ETONOGESTREL

REACTIONS (5)
  - Device dislocation [None]
  - Exposure during pregnancy [None]
  - Product complaint [None]
  - Subchorionic haematoma [None]
  - Pregnancy with contraceptive device [None]
